FAERS Safety Report 21095563 (Version 4)
Quarter: 2023Q1

REPORT INFORMATION
  Report Type: Spontaneous
  Country: US (occurrence: US)
  Receive Date: 20220718
  Receipt Date: 20230206
  Transmission Date: 20230418
  Serious: No
  Sender: FDA-Public Use
  Company Number: US-PFIZER INC-PV202200007587

PATIENT
  Age: 75 Year
  Sex: Female

DRUGS (1)
  1. IBRANCE [Suspect]
     Active Substance: PALBOCICLIB
     Indication: Breast cancer
     Dosage: 125 MG
     Dates: start: 2022

REACTIONS (10)
  - Neoplasm progression [Unknown]
  - Insomnia [Unknown]
  - Headache [Unknown]
  - Night sweats [Unknown]
  - Hot flush [Unknown]
  - Initial insomnia [Unknown]
  - Pruritus [Unknown]
  - Alopecia [Unknown]
  - Weight increased [Unknown]
  - Fatigue [Unknown]
